FAERS Safety Report 5460338-6 (Version None)
Quarter: 2007Q3

REPORT INFORMATION
  Report Type: 
  Country: None (occurrence: None)
  Receive Date: 20070919
  Receipt Date: 20070629
  Transmission Date: 20080115
  Serious: No
  Sender: FDA-Public Use
  Company Number: US-ASTRAZENECA-2007UW15556

PATIENT
  Age: 46 Year
  Sex: Male

DRUGS (6)
  1. SEROQUEL [Suspect]
     Route: 048
     Dates: start: 20070612
  2. HYDROCHLOROTHIAZIDE [Concomitant]
  3. ACCUPRIL [Concomitant]
  4. GABAPENTIN [Concomitant]
  5. LAMICTAL [Concomitant]
  6. NEXIUM [Concomitant]
     Route: 048

REACTIONS (2)
  - BILIRUBIN CONJUGATED INCREASED [None]
  - BLOOD BILIRUBIN INCREASED [None]
